FAERS Safety Report 11264863 (Version 1)
Quarter: 2015Q3

REPORT INFORMATION
  Report Type: Spontaneous
  Country: BR (occurrence: None)
  Receive Date: 20150709
  Receipt Date: 20150709
  Transmission Date: 20151125
  Serious: Yes (Other)
  Sender: FDA-Public Use
  Company Number: BR-TORRENT-00002997

PATIENT
  Age: 57 Year
  Sex: Male

DRUGS (3)
  1. RIVOTRIL [Concomitant]
     Active Substance: CLONAZEPAM
  2. ESPRAN [Suspect]
     Active Substance: ESCITALOPRAM OXALATE
     Indication: PANIC DISORDER
     Route: 048
     Dates: start: 201503, end: 20150625
  3. DIOVAN AMIO [Concomitant]

REACTIONS (17)
  - Abnormal dreams [None]
  - Dry mouth [None]
  - Haematochezia [None]
  - Pyrexia [None]
  - Dyspnoea [None]
  - Gastrointestinal haemorrhage [None]
  - Tachycardia [None]
  - Dysphagia [None]
  - Dizziness postural [None]
  - Hyperhidrosis [None]
  - Myalgia [None]
  - Somnolence [None]
  - Initial insomnia [None]
  - Urticaria [None]
  - Pollakiuria [None]
  - Nausea [None]
  - Nasal congestion [None]

NARRATIVE: CASE EVENT DATE: 201503
